FAERS Safety Report 7540142-5 (Version None)
Quarter: 2011Q2

REPORT INFORMATION
  Report Type: 
  Country: None (occurrence: None)
  Receive Date: 20110610
  Receipt Date: 20110601
  Transmission Date: 20111010
  Serious: Yes (Hospitalization)
  Sender: FDA-Public Use
  Company Number: US-ASTRAZENECA-2011SE34238

PATIENT
  Age: 75 Year
  Sex: Male

DRUGS (4)
  1. PRILOSEC [Suspect]
     Route: 048
  2. PLAVIX [Interacting]
     Indication: STENT PLACEMENT
     Route: 048
  3. PLAVIX [Interacting]
     Route: 048
     Dates: start: 20110401
  4. ASPIRIN [Concomitant]

REACTIONS (5)
  - DRUG INTERACTION [None]
  - STENT PLACEMENT [None]
  - CHEST PAIN [None]
  - NAUSEA [None]
  - DYSPNOEA [None]
